FAERS Safety Report 8400225-4 (Version None)
Quarter: 2012Q2

REPORT INFORMATION
  Report Type: 
  Country: None (occurrence: None)
  Receive Date: 20120531
  Receipt Date: 20120522
  Transmission Date: 20120825
  Serious: Yes (Hospitalization)
  Sender: FDA-Public Use
  Company Number: GB-ABBOTT-12P-167-0937831-00

PATIENT
  Age: 32 Year
  Sex: Male

DRUGS (1)
  1. HUMIRA [Suspect]
     Indication: ANKYLOSING SPONDYLITIS

REACTIONS (5)
  - CENTRAL NERVOUS SYSTEM LESION [None]
  - EPILEPSY [None]
  - TUBERCULOSIS [None]
  - RESPIRATORY DISORDER [None]
  - PULMONARY CAVITATION [None]
